FAERS Safety Report 9527203 (Version 2)
Quarter: 2013Q4

REPORT INFORMATION
  Report Type: Report from Study
  Country: US (occurrence: US)
  Receive Date: 20130917
  Receipt Date: 20131011
  Transmission Date: 20140711
  Serious: Yes (Death)
  Sender: FDA-Public Use
  Company Number: US-ROCHE-1274814

PATIENT
  Age: 85 Year
  Sex: Male

DRUGS (5)
  1. RANIBIZUMAB [Suspect]
     Indication: AGE-RELATED MACULAR DEGENERATION
     Route: 050
     Dates: start: 20120424
  2. RANIBIZUMAB [Suspect]
     Route: 050
     Dates: start: 20120823
  3. ASPIRIN [Concomitant]
     Indication: PROPHYLAXIS
     Route: 065
     Dates: start: 2007
  4. SIMVASTATIN [Concomitant]
     Indication: HYPERLIPIDAEMIA
     Route: 065
     Dates: start: 2007
  5. METOPROLOL TARTRATE [Concomitant]
     Indication: HYPERTENSION
     Route: 065
     Dates: start: 2007

REACTIONS (3)
  - Myocardial infarction [Fatal]
  - Hypertension [Fatal]
  - Angina pectoris [Fatal]
